FAERS Safety Report 5475161-6 (Version None)
Quarter: 2007Q4

REPORT INFORMATION
  Report Type: 
  Country: None (occurrence: None)
  Receive Date: 20071002
  Receipt Date: 20070924
  Transmission Date: 20080405
  Serious: Yes (Other)
  Sender: FDA-Public Use
  Company Number: DE-PFIZER INC-2007071588

PATIENT
  Sex: Female
  Weight: 140 kg

DRUGS (3)
  1. ZELDOX (CAPSULES) [Suspect]
     Indication: BIPOLAR DISORDER
     Dosage: DAILY DOSE:140MG
     Route: 048
     Dates: start: 20030101, end: 20070401
  2. ZELDOX (CAPSULES) [Suspect]
     Indication: SCHIZOPHRENIA, DISORGANISED TYPE
  3. FLUOXETINE HCL [Concomitant]

REACTIONS (2)
  - METABOLIC SYNDROME [None]
  - WEIGHT INCREASED [None]
